FAERS Safety Report 19926993 (Version 2)
Quarter: 2023Q4

REPORT INFORMATION
  Report Type: Spontaneous
  Country: US (occurrence: US)
  Receive Date: 20211007
  Receipt Date: 20231006
  Transmission Date: 20240109
  Serious: No
  Sender: FDA-Public Use
  Company Number: US-INDIVIOR US-INDV-128668-2021

PATIENT
  Sex: Male

DRUGS (5)
  1. SUBOXONE [Suspect]
     Active Substance: BUPRENORPHINE HYDROCHLORIDE\NALOXONE HYDROCHLORIDE
     Indication: Drug dependence
     Dosage: 8MILLIGRAM, CUTTING IN HALVES(4 PIECES), QID
     Route: 060
  2. SUBOXONE [Suspect]
     Active Substance: BUPRENORPHINE HYDROCHLORIDE\NALOXONE HYDROCHLORIDE
     Indication: Drug dependence
     Dosage: 12 MG, (CUTTING INTO 4 PIECES AND DOSING QID)
     Route: 060
     Dates: start: 2019
  3. SUBOXONE [Suspect]
     Active Substance: BUPRENORPHINE HYDROCHLORIDE\NALOXONE HYDROCHLORIDE
     Dosage: 12 MG (BREAK THEM IN HALF AND TAKE A COUPLE THROUGHOUT THE DAY)
     Route: 060
  4. SUBOXONE [Suspect]
     Active Substance: BUPRENORPHINE HYDROCHLORIDE\NALOXONE HYDROCHLORIDE
     Dosage: 12 MILLIGRAM, QD
     Route: 060
  5. SUBOXONE [Suspect]
     Active Substance: BUPRENORPHINE HYDROCHLORIDE\NALOXONE HYDROCHLORIDE
     Indication: Drug dependence
     Dosage: 2 MILLIGRAM, QD
     Route: 065

REACTIONS (16)
  - Overweight [Unknown]
  - Inappropriate schedule of product administration [Recovered/Resolved]
  - Wrong technique in product usage process [Recovered/Resolved]
  - Intentional underdose [Recovered/Resolved]
  - Panic attack [Not Recovered/Not Resolved]
  - Drug withdrawal syndrome [Not Recovered/Not Resolved]
  - Dyspepsia [Unknown]
  - Anxiety [Not Recovered/Not Resolved]
  - Pain [Not Recovered/Not Resolved]
  - Decreased appetite [Not Recovered/Not Resolved]
  - Nausea [Not Recovered/Not Resolved]
  - Irritability [Not Recovered/Not Resolved]
  - Feeling of body temperature change [Not Recovered/Not Resolved]
  - Abdominal pain upper [Unknown]
  - Vomiting [Unknown]
  - Headache [Unknown]
